FAERS Safety Report 13184191 (Version 1)
Quarter: 2017Q1

REPORT INFORMATION
  Report Type: Spontaneous
  Country: US (occurrence: US)
  Receive Date: 20170203
  Receipt Date: 20170203
  Transmission Date: 20170428
  Serious: Yes (Other)
  Sender: FDA-Public Use
  Company Number: US-PFIZER INC-2017047174

PATIENT
  Age: 43 Year
  Sex: Female

DRUGS (2)
  1. HYDROCORTISONE ACETATE. [Suspect]
     Active Substance: HYDROCORTISONE ACETATE
     Indication: ADRENAL INSUFFICIENCY
     Dosage: 100 MG, 3X/DAY
  2. HYDROCORTISONE ACETATE. [Suspect]
     Active Substance: HYDROCORTISONE ACETATE
     Indication: SEPSIS

REACTIONS (1)
  - Reversible cerebral vasoconstriction syndrome [Recovered/Resolved]
